FAERS Safety Report 9519612 (Version 2)
Quarter: 2013Q4

REPORT INFORMATION
  Report Type: Spontaneous
  Country: US (occurrence: US)
  Receive Date: 20130912
  Receipt Date: 20131008
  Transmission Date: 20140711
  Serious: No
  Sender: FDA-Public Use
  Company Number: US-TEVA-432021USA

PATIENT
  Age: 36 Year
  Sex: Female
  Weight: 49.03 kg

DRUGS (2)
  1. PLAN B ONE-STEP [Suspect]
     Indication: POST COITAL CONTRACEPTION
     Dosage: 1.5 MILLIGRAM DAILY;
     Route: 048
     Dates: start: 20130902, end: 20130902
  2. VITAMINS [Concomitant]
     Indication: MEDICAL DIET

REACTIONS (4)
  - Anxiety [Recovered/Resolved]
  - Heart rate increased [Recovered/Resolved]
  - Nervousness [Recovered/Resolved]
  - Dizziness [Recovered/Resolved]
